FAERS Safety Report 8622648 (Version 11)
Quarter: 2016Q3

REPORT INFORMATION
  Report Type: Spontaneous
  Country: US (occurrence: US)
  Receive Date: 20120619
  Receipt Date: 20160727
  Transmission Date: 20161109
  Serious: Yes (Hospitalization, Other)
  Sender: FDA-Public Use
  Company Number: US-JNJFOC-20120606087

PATIENT
  Age: 41 Year
  Sex: Female
  Weight: 68.04 kg

DRUGS (8)
  1. TYLENOL [Suspect]
     Active Substance: ACETAMINOPHEN
     Indication: CHILLS
     Dosage: 2 GRAMS EVERY 3 HOURS (MORE THAN OR EQUAL TO 18-24 HOURS).
     Route: 048
     Dates: start: 20100528, end: 201005
  2. TYLENOL [Suspect]
     Active Substance: ACETAMINOPHEN
     Indication: PYREXIA
     Dosage: 2 GRAMS EVERY 3 HOURS (MORE THAN OR EQUAL TO 18-24 HOURS).
     Route: 048
     Dates: start: 20100528, end: 201005
  3. ALCOHOL. [Suspect]
     Active Substance: ALCOHOL
     Indication: PRODUCT USED FOR UNKNOWN INDICATION
     Route: 065
  4. TYLENOL EXTRA STRENGTH [Suspect]
     Active Substance: ACETAMINOPHEN
     Indication: BACK PAIN
     Route: 048
     Dates: start: 20100527
  5. TYLENOL EXTRA STRENGTH [Suspect]
     Active Substance: ACETAMINOPHEN
     Indication: CHILLS
     Route: 048
     Dates: start: 20100527
  6. TYLENOL [Suspect]
     Active Substance: ACETAMINOPHEN
     Indication: BACK PAIN
     Dosage: 2 GRAMS EVERY 3 HOURS (MORE THAN OR EQUAL TO 18-24 HOURS).
     Route: 048
     Dates: start: 20100528, end: 201005
  7. TYLENOL EXTRA STRENGTH [Suspect]
     Active Substance: ACETAMINOPHEN
     Indication: PYREXIA
     Route: 048
     Dates: start: 20100527
  8. CLARITIN [Concomitant]
     Active Substance: LORATADINE
     Indication: MULTIPLE ALLERGIES
     Route: 065

REACTIONS (5)
  - Urinary tract infection [Unknown]
  - Accidental overdose [Unknown]
  - Renal failure [Unknown]
  - Acute hepatic failure [Recovering/Resolving]
  - Toxicity to various agents [Recovering/Resolving]

NARRATIVE: CASE EVENT DATE: 201005
